FAERS Safety Report 6849049-X (Version None)
Quarter: 2010Q3

REPORT INFORMATION
  Report Type: 
  Country: None (occurrence: None)
  Receive Date: 20100716
  Receipt Date: 20060512
  Transmission Date: 20110219
  Serious: Yes (Other)
  Sender: FDA-Public Use
  Company Number: PHHY2006AU02603

PATIENT

DRUGS (3)
  1. CLOZARIL [Suspect]
     Indication: SCHIZOPHRENIA
     Route: 048
  2. OLANZAPINE [Concomitant]
     Dosage: 30 MG
  3. CLOPIXOL [Concomitant]
     Dosage: 400 MG, FORTNIGHT

REACTIONS (1)
  - HYPERTENSIVE CRISIS [None]
